FAERS Safety Report 5466124-5 (Version None)
Quarter: 2007Q3

REPORT INFORMATION
  Report Type: 
  Country: None (occurrence: None)
  Receive Date: 20070924
  Receipt Date: 20070917
  Transmission Date: 20080115
  Serious: Yes (Death, Hospitalization, Disabling)
  Sender: FDA-Public Use
  Company Number: US-PFIZER INC-2006105931

PATIENT
  Sex: Male
  Weight: 81.6 kg

DRUGS (14)
  1. CELEBREX [Suspect]
     Indication: RHEUMATOID ARTHRITIS
     Dosage: FREQ:100 MG - 200 MG
     Dates: start: 20020101, end: 20030526
  2. BEXTRA [Suspect]
     Indication: RHEUMATOID ARTHRITIS
     Dates: start: 20030930, end: 20040731
  3. VIOXX [Suspect]
     Indication: RHEUMATOID ARTHRITIS
     Route: 048
     Dates: start: 20030919, end: 20040801
  4. IBUPROFEN [Concomitant]
     Dates: start: 20030830, end: 20040813
  5. HYDROCODONE BITARTRATE [Concomitant]
     Dates: start: 20020821, end: 20040813
  6. NEURONTIN [Concomitant]
     Dates: start: 20030321, end: 20040813
  7. DURAGESIC-100 [Concomitant]
     Dates: start: 20030704, end: 20040813
  8. LISINOPRIL [Concomitant]
     Dates: start: 20020821, end: 20040813
  9. COZAAR [Concomitant]
     Dates: start: 20030808, end: 20040813
  10. TOPROL-XL [Concomitant]
     Dates: start: 20021025, end: 20040813
  11. FUROSEMIDE [Concomitant]
     Dates: start: 20030808, end: 20040813
  12. HYDROCHLOROTHIAZIDE [Concomitant]
     Dates: start: 20020912, end: 20040813
  13. PLAVIX [Concomitant]
     Dates: start: 20020821, end: 20040813
  14. LIPITOR [Concomitant]
     Dates: start: 20021025, end: 20040813

REACTIONS (7)
  - BLOOD CHOLESTEROL INCREASED [None]
  - BLOOD TRIGLYCERIDES INCREASED [None]
  - CARDIAC ARREST [None]
  - CEREBROVASCULAR ACCIDENT [None]
  - DIABETES MELLITUS [None]
  - HYPERTENSION [None]
  - MYOCARDIAL INFARCTION [None]
